FAERS Safety Report 7152738-3 (Version None)
Quarter: 2010Q4

REPORT INFORMATION
  Report Type: 
  Country: None (occurrence: None)
  Receive Date: 20101213
  Receipt Date: 20101203
  Transmission Date: 20110411
  Serious: Yes (Death)
  Sender: FDA-Public Use
  Company Number: BE-ABBOTT-10P-013-0669288-00

PATIENT
  Sex: Male
  Weight: 67 kg

DRUGS (2)
  1. LUCRIN DEPOT 11.25 MG [Suspect]
     Indication: PRODUCT USED FOR UNKNOWN INDICATION
     Dates: start: 20100702, end: 20100813
  2. ZOMETA [Concomitant]
     Indication: METASTASES TO BONE
     Route: 042
     Dates: start: 20100702, end: 20100806

REACTIONS (4)
  - ADENOCARCINOMA [None]
  - DEEP VEIN THROMBOSIS [None]
  - OEDEMA [None]
  - PULMONARY EMBOLISM [None]
